FAERS Safety Report 7815074-5 (Version None)
Quarter: 2011Q4

REPORT INFORMATION
  Report Type: 
  Country: None (occurrence: None)
  Receive Date: 20111013
  Receipt Date: 20111013
  Transmission Date: 20120403
  Serious: No
  Sender: FDA-Public Use
  Company Number: None

PATIENT
  Sex: Female
  Weight: 79.8331 kg

DRUGS (1)
  1. AMITIZA [Suspect]
     Dosage: 24 MCG 2X DAY
     Dates: start: 20110801

REACTIONS (2)
  - CHEST DISCOMFORT [None]
  - DYSPNOEA [None]
